FAERS Safety Report 9926009 (Version 2)
Quarter: 2014Q1

REPORT INFORMATION
  Report Type: Spontaneous
  Country: US (occurrence: US)
  Receive Date: 20140226
  Receipt Date: 20140328
  Transmission Date: 20141002
  Serious: No
  Sender: FDA-Public Use
  Company Number: US-B.I. PHARMACEUTICALS,INC./RIDGEFIELD-2014-BI-07657BP

PATIENT
  Age: 50 Year
  Sex: Female
  Weight: 104.54 kg

DRUGS (2)
  1. SPIRIVA [Suspect]
     Indication: ASTHMA
     Route: 055
     Dates: start: 201306
  2. ADVAIR 250/50 [Concomitant]
     Dosage: DOSE PER APPLICATION: 250/50: DAILY DOSE 500/100
     Route: 065

REACTIONS (3)
  - Dyspnoea [Recovered/Resolved]
  - Product quality issue [Recovered/Resolved]
  - Off label use [Unknown]
